FAERS Safety Report 25661907 (Version 1)
Quarter: 2025Q3

REPORT INFORMATION
  Report Type: Spontaneous
  Country: EU (occurrence: EU)
  Receive Date: 20250809
  Receipt Date: 20250809
  Transmission Date: 20251020
  Serious: Yes (Hospitalization)
  Sender: MERCK SHARP & DOHME LLC
  Company Number: EU-009507513-2317531

PATIENT
  Age: 50 Year
  Sex: Female

DRUGS (1)
  1. KEYTRUDA [Suspect]
     Active Substance: PEMBROLIZUMAB
     Indication: Triple negative breast cancer
     Dates: start: 20250127, end: 20250522

REACTIONS (1)
  - Adrenal disorder [Unknown]

NARRATIVE: CASE EVENT DATE: 20250728
